FAERS Safety Report 13342795 (Version 3)
Quarter: 2017Q2

REPORT INFORMATION
  Report Type: Report from Study
  Country: BE (occurrence: BE)
  Receive Date: 20170316
  Receipt Date: 20170425
  Transmission Date: 20170830
  Serious: Yes (Life-Threatening, Hospitalization)
  Sender: FDA-Public Use
  Company Number: PHHY2015BE134837

PATIENT
  Age: 69 Year
  Sex: Female

DRUGS (1)
  1. TASIGNA [Suspect]
     Active Substance: NILOTINIB
     Indication: CHRONIC MYELOID LEUKAEMIA
     Dosage: 300 MG, BID
     Route: 048
     Dates: start: 20131219

REACTIONS (12)
  - Headache [Unknown]
  - Pain in extremity [Unknown]
  - Varicose vein [Unknown]
  - Hypercholesterolaemia [Unknown]
  - Cataract [Unknown]
  - Basal cell carcinoma [Recovered/Resolved]
  - Second primary malignancy [Recovered/Resolved]
  - Rash erythematous [Unknown]
  - Cough [Unknown]
  - Basosquamous carcinoma [Recovered/Resolved]
  - Skin lesion [Unknown]
  - Weight increased [Unknown]

NARRATIVE: CASE EVENT DATE: 20131219
